FAERS Safety Report 24775417 (Version 1)
Quarter: 2024Q4

REPORT INFORMATION
  Report Type: Spontaneous
  Country: US (occurrence: US)
  Receive Date: 20241226
  Receipt Date: 20241226
  Transmission Date: 20250115
  Serious: Yes (Other)
  Sender: STRIDES
  Company Number: US-STRIDES ARCOLAB LIMITED-2023SP018792

PATIENT
  Age: 22 Year
  Sex: Female

DRUGS (4)
  1. TRAMADOL [Suspect]
     Active Substance: TRAMADOL
     Indication: Sacroiliitis
     Dosage: UNK
     Route: 065
     Dates: start: 2016
  2. ETANERCEPT [Suspect]
     Active Substance: ETANERCEPT
     Indication: Sacroiliitis
     Dosage: UNK
     Route: 065
     Dates: start: 2016
  3. CELECOXIB [Suspect]
     Active Substance: CELECOXIB
     Indication: Sacroiliitis
     Dosage: UNK
     Route: 065
     Dates: start: 2016
  4. ADALIMUMAB [Suspect]
     Active Substance: ADALIMUMAB
     Indication: Sacroiliitis
     Dosage: UNK
     Route: 065

REACTIONS (1)
  - Drug ineffective for unapproved indication [Unknown]
